FAERS Safety Report 10037867 (Version 1)
Quarter: 2014Q1

REPORT INFORMATION
  Report Type: Spontaneous
  Country: US (occurrence: US)
  Receive Date: 20140326
  Receipt Date: 20140326
  Transmission Date: 20141002
  Serious: Yes (Hospitalization)
  Sender: FDA-Public Use
  Company Number: US-ASTRAZENECA-2014SE18921

PATIENT
  Age: 47 Year
  Sex: Female

DRUGS (8)
  1. SEROQUEL [Suspect]
     Route: 048
     Dates: start: 200904, end: 20090610
  2. LAMICTAL [Suspect]
     Indication: BIPOLAR DISORDER
     Route: 048
     Dates: start: 2008
  3. LAMICTAL [Suspect]
     Indication: BORDERLINE PERSONALITY DISORDER
     Route: 048
     Dates: start: 2008
  4. LAMICTAL [Suspect]
     Indication: BIPOLAR DISORDER
     Route: 048
     Dates: start: 2008
  5. LAMICTAL [Suspect]
     Indication: BORDERLINE PERSONALITY DISORDER
     Route: 048
     Dates: start: 2008
  6. WELLBUTRIN SR [Suspect]
     Indication: MENTAL DISORDER
     Route: 065
     Dates: start: 20110512
  7. VENTOLIN [Suspect]
     Route: 065
     Dates: start: 20100817
  8. METFORMIN [Concomitant]

REACTIONS (4)
  - Liver disorder [Unknown]
  - Rash [Unknown]
  - Contusion [Unknown]
  - Urticaria [Unknown]
